FAERS Safety Report 9775258 (Version 2)
Quarter: 2014Q1

REPORT INFORMATION
  Report Type: Spontaneous
  Country: US (occurrence: US)
  Receive Date: 20131220
  Receipt Date: 20140207
  Transmission Date: 20141002
  Serious: No
  Sender: FDA-Public Use
  Company Number: US-009507513-1312USA008622

PATIENT
  Age: 19 Year
  Sex: Female
  Weight: 80.73 kg

DRUGS (2)
  1. NEXPLANON [Suspect]
     Dosage: UNK
     Route: 059
     Dates: start: 20131218
  2. INFLUENZA VIRUS VACCINE (UNSPECIFIED) [Concomitant]
     Indication: PROPHYLAXIS
     Route: 030
     Dates: start: 20131203, end: 20131203

REACTIONS (2)
  - Device difficult to use [Recovered/Resolved]
  - No adverse event [Unknown]
